FAERS Safety Report 9742745 (Version 2)
Quarter: 2013Q4

REPORT INFORMATION
  Report Type: Spontaneous
  Country: US (occurrence: US)
  Receive Date: 20131210
  Receipt Date: 20131210
  Transmission Date: 20140711
  Serious: No
  Sender: FDA-Public Use
  Company Number: US-GILEAD-2009-0025847

PATIENT
  Age: 66 Year
  Sex: Male

DRUGS (8)
  1. LETAIRIS [Suspect]
     Indication: PULMONARY ARTERIAL HYPERTENSION
     Route: 048
  2. METOLAZONE [Concomitant]
  3. LASIX [Concomitant]
  4. BABY ASPIRIN [Concomitant]
  5. SPIRIVA [Concomitant]
  6. ADVAIR [Concomitant]
  7. PROAIR HFA [Concomitant]
  8. REQUIP [Concomitant]

REACTIONS (2)
  - Pain in extremity [Recovering/Resolving]
  - Pruritus [Recovering/Resolving]
